FAERS Safety Report 8371663-3 (Version None)
Quarter: 2012Q2

REPORT INFORMATION
  Report Type: 
  Country: None (occurrence: None)
  Receive Date: 20120518
  Receipt Date: 20120514
  Transmission Date: 20120825
  Serious: Yes (Other)
  Sender: FDA-Public Use
  Company Number: US-PFIZER INC-2012117339

PATIENT
  Age: 69 Year
  Sex: Male

DRUGS (2)
  1. TOVIAZ [Suspect]
     Dosage: 8 MG, 1X/DAY
     Route: 048
     Dates: start: 20120501, end: 20120511
  2. TOVIAZ [Suspect]
     Indication: HYPERTONIC BLADDER
     Dosage: 4 MG, 1X/DAY
     Route: 048
     Dates: start: 20120509, end: 20120501

REACTIONS (2)
  - FLUID RETENTION [None]
  - DRUG INEFFECTIVE [None]
